FAERS Safety Report 4299766-3 (Version None)
Quarter: 2004Q1

REPORT INFORMATION
  Report Type: 
  Country: None (occurrence: None)
  Receive Date: 20040126
  Receipt Date: 20031113
  Transmission Date: 20041129
  Serious: No
  Sender: FDA-Public Use
  Company Number: USA031152573

PATIENT
  Age: 9 Year
  Sex: Male
  Weight: 24 kg

DRUGS (3)
  1. STRATTERA [Suspect]
     Dosage: 40 MG/DAY
     Dates: start: 20031001
  2. METADATE CD [Concomitant]
  3. RITALIN [Concomitant]

REACTIONS (5)
  - ABNORMAL BEHAVIOUR [None]
  - DRUG INEFFECTIVE [None]
  - PRESCRIBED OVERDOSE [None]
  - VOMITING [None]
  - WEIGHT INCREASED [None]
